FAERS Safety Report 15084635 (Version 1)
Quarter: 2018Q2

REPORT INFORMATION
  Report Type: Other
  Country: US (occurrence: US)
  Receive Date: 20180628
  Receipt Date: 20180628
  Transmission Date: 20180711
  Serious: Yes (Hospitalization)
  Sender: FDA-Public Use
  Company Number: US-HLSUS-2018-US-000516

PATIENT
  Age: 36 Year
  Sex: Male

DRUGS (5)
  1. LORATADINE. [Concomitant]
     Active Substance: LORATADINE
  2. IBUPROFEN. [Concomitant]
     Active Substance: IBUPROFEN
  3. RANITIDINE. [Concomitant]
     Active Substance: RANITIDINE
  4. CLOZAPINE. [Suspect]
     Active Substance: CLOZAPINE
     Indication: PRODUCT USED FOR UNKNOWN INDICATION
     Dosage: 100MG QD
     Route: 048
  5. DIVALPROEX [Concomitant]
     Active Substance: DIVALPROEX SODIUM

REACTIONS (57)
  - Mood swings [Unknown]
  - Psychiatric symptom [Unknown]
  - Blood pressure abnormal [Unknown]
  - Anger [Unknown]
  - Dyspepsia [Unknown]
  - Tremor [Unknown]
  - Energy increased [Unknown]
  - Tachycardia [Unknown]
  - Computerised tomogram head [Unknown]
  - Hyperventilation [Unknown]
  - Feeling abnormal [Unknown]
  - Suicidal ideation [Unknown]
  - Weight increased [Unknown]
  - Condition aggravated [Unknown]
  - Cognitive disorder [Unknown]
  - Sluggishness [Unknown]
  - Dizziness [Unknown]
  - Ear infection [Unknown]
  - Jaw disorder [Unknown]
  - Salivary hypersecretion [Unknown]
  - Dyskinesia [Unknown]
  - Emotional disorder [Unknown]
  - Sexual dysfunction [Unknown]
  - Hypoaesthesia [Unknown]
  - Sleep disorder [Unknown]
  - Muscle spasms [Unknown]
  - Drooling [Unknown]
  - Fatigue [Unknown]
  - Nausea [Unknown]
  - Orthostatic hypotension [Unknown]
  - Loss of employment [Unknown]
  - Intrusive thoughts [Unknown]
  - Blunted affect [Unknown]
  - Emotional distress [Unknown]
  - Mental disorder [Unknown]
  - Compulsive sexual behaviour [Unknown]
  - Suicide attempt [Unknown]
  - Restlessness [Unknown]
  - Ejaculation delayed [Unknown]
  - Sensory loss [Unknown]
  - Eating disorder [Unknown]
  - Flatulence [Unknown]
  - Libido decreased [Unknown]
  - Abdominal discomfort [Unknown]
  - Sedation [Unknown]
  - Agitation [Unknown]
  - Tardive dyskinesia [Unknown]
  - Economic problem [Unknown]
  - Product use in unapproved indication [Unknown]
  - Tearfulness [Unknown]
  - Constipation [Unknown]
  - Depressed mood [Unknown]
  - Delusion [Unknown]
  - Compulsive shopping [Unknown]
  - Hypersexuality [Unknown]
  - Somnolence [Unknown]
  - Memory impairment [Unknown]

NARRATIVE: CASE EVENT DATE: 200306
